FAERS Safety Report 22186363 (Version 1)
Quarter: 2023Q2

REPORT INFORMATION
  Report Type: Spontaneous
  Country: US (occurrence: None)
  Receive Date: 20230406
  Receipt Date: 20230406
  Transmission Date: 20230722
  Serious: Yes (Hospitalization)
  Sender: FDA-Public Use
  Company Number: None

PATIENT
  Age: 84 Year
  Sex: Male

DRUGS (14)
  1. MYCOPHENOLIC ACID [Suspect]
     Active Substance: MYCOPHENOLIC ACID
     Indication: Renal transplant
     Dosage: FREQUENCY : TWICE A DAY;?
     Route: 048
     Dates: start: 20220223
  2. MYCOPHENOLIC ACID [Suspect]
     Active Substance: MYCOPHENOLIC ACID
     Dosage: FREQUENCY : TWICE A DAY;?
     Route: 048
  3. SIROLIMUS [Suspect]
     Active Substance: SIROLIMUS
     Indication: Renal transplant
     Route: 048
     Dates: start: 20221223
  4. SIROLIMUS [Suspect]
     Active Substance: SIROLIMUS
     Dosage: FREQUENCY : DAILY;?
     Route: 048
  5. TACROLIMUS [Concomitant]
     Active Substance: TACROLIMUS
  6. ALLOPURINOL [Concomitant]
  7. TAMSULOSIN [Concomitant]
  8. PRENISONE [Concomitant]
  9. METOPROL SUC [Concomitant]
  10. FURSEOMIDE [Concomitant]
  11. FINASTERIDE [Concomitant]
  12. ENTRESTO [Concomitant]
  13. ELIQUIS [Concomitant]
     Active Substance: APIXABAN
  14. ALLPURINOL [Concomitant]

REACTIONS (2)
  - Asthenia [None]
  - Dizziness [None]

NARRATIVE: CASE EVENT DATE: 20230317
